FAERS Safety Report 23739724 (Version 1)
Quarter: 2024Q2

REPORT INFORMATION
  Report Type: Spontaneous
  Country: ES (occurrence: ES)
  Receive Date: 20240414
  Receipt Date: 20240414
  Transmission Date: 20240716
  Serious: Yes (Hospitalization, Other)
  Sender: FDA-Public Use
  Company Number: ES-ROCHE-2779802

PATIENT
  Age: 68 Year
  Sex: Female

DRUGS (6)
  1. CARBOPLATIN [Suspect]
     Active Substance: CARBOPLATIN
     Indication: HER2 positive breast cancer
     Dosage: 251.36 MILLIGRAM (ON 29/JAN/2021, SHE RECEIVED LAST DOSE OF CARBOPLATIN (251.36 MG) PRIOR TO ONSET O
     Route: 042
     Dates: start: 20201209
  2. CARBOPLATIN [Suspect]
     Active Substance: CARBOPLATIN
     Dosage: UNK
     Route: 042
     Dates: start: 20211209, end: 20211209
  3. PACLITAXEL [Suspect]
     Active Substance: PACLITAXEL
     Indication: HER2 positive breast cancer
     Dosage: 90 MILLIGRAM/SQ. METER (ON 29/JAN/2021, SHE RECEIVED LAST DOSE OF PACLITAXEL (172 MG) PRIOR TO ONSET
     Route: 042
     Dates: start: 20201209
  4. TRASTUZUMAB [Suspect]
     Active Substance: TRASTUZUMAB
     Indication: HER2 positive breast cancer
     Dosage: 8 MILLIGRAM/KILOGRAM (ON DAY 1 AT THE DOSE OF 8 MG/KG LOADING DOSE I.V., THEN 6 MG/KG)
     Route: 042
     Dates: start: 20201209
  5. ATEZOLIZUMAB [Suspect]
     Active Substance: ATEZOLIZUMAB
     Indication: HER2 positive breast cancer
     Dosage: 1200 MILLIGRAM (3 WEEK) (N 22/JAN/2021, SHE RECEIVED LAST DOSE OF ATEZOLIZUMAB (1200 MG) PRIOR TO ON
     Route: 041
     Dates: start: 20200924, end: 20210122
  6. PERTUZUMAB [Suspect]
     Active Substance: PERTUZUMAB
     Indication: HER2 positive breast cancer
     Dosage: 840 MILLIGRAM  (DAY 1 AT THE DOSE OF 840 MG LOADING DOSE I.V., THEN 420 MG)
     Route: 042
     Dates: start: 20201209

REACTIONS (1)
  - Acute kidney injury [Recovered/Resolved with Sequelae]

NARRATIVE: CASE EVENT DATE: 20210221
